FAERS Safety Report 11974937 (Version 2)
Quarter: 2016Q1

REPORT INFORMATION
  Report Type: Report from Study
  Country: DE (occurrence: DE)
  Receive Date: 20160128
  Receipt Date: 20160303
  Transmission Date: 20160526
  Serious: Yes (Death)
  Sender: FDA-Public Use
  Company Number: DE-ABBVIE-16P-062-1545868-00

PATIENT
  Age: 77 Year
  Sex: Male

DRUGS (4)
  1. VITAMIN B [Concomitant]
     Active Substance: VITAMIN B
     Indication: PRODUCT USED FOR UNKNOWN INDICATION
  2. DUODOPA [Suspect]
     Active Substance: CARBIDOPA\LEVODOPA
     Indication: PARKINSON^S DISEASE
     Dosage: MD 4ML, CRD 1.7ML/H, CRN 0.6ML/H, ED 1.8ML
     Route: 050
     Dates: start: 20130327, end: 20151214
  3. NACOM [Concomitant]
     Active Substance: CARBIDOPA\LEVODOPA
     Indication: PRODUCT USED FOR UNKNOWN INDICATION
  4. CIPRALEX [Concomitant]
     Active Substance: ESCITALOPRAM OXALATE
     Indication: PRODUCT USED FOR UNKNOWN INDICATION

REACTIONS (3)
  - General physical health deterioration [Fatal]
  - Pneumonia [Fatal]
  - Dysphagia [Fatal]

NARRATIVE: CASE EVENT DATE: 20151209
